FAERS Safety Report 13750895 (Version 2)
Quarter: 2018Q3

REPORT INFORMATION
  Report Type: Spontaneous
  Country: US (occurrence: US)
  Receive Date: 20170713
  Receipt Date: 20180713
  Transmission Date: 20181010
  Serious: No
  Sender: FDA-Public Use
  Company Number: US-ASTELLAS-2017US006579

PATIENT
  Sex: Male

DRUGS (3)
  1. MYRBETRIQ [Suspect]
     Active Substance: MIRABEGRON
     Indication: BENIGN PROSTATIC HYPERPLASIA
  2. MYRBETRIQ [Suspect]
     Active Substance: MIRABEGRON
     Indication: PROSTATOMEGALY
     Route: 048
  3. MYRBETRIQ [Suspect]
     Active Substance: MIRABEGRON
     Indication: LOWER URINARY TRACT SYMPTOMS

REACTIONS (2)
  - Intentional product misuse [Unknown]
  - Off label use [Unknown]
